FAERS Safety Report 5167523-1 (Version None)
Quarter: 2006Q4

REPORT INFORMATION
  Report Type: 
  Country: None (occurrence: None)
  Receive Date: 20060830
  Receipt Date: 20060605
  Transmission Date: 20070319
  Serious: Yes (Other)
  Sender: FDA-Public Use
  Company Number: 225696

PATIENT
  Age: 60 Year
  Sex: Female

DRUGS (9)
  1. XOLAIR [Suspect]
     Indication: ASTHMA
     Dosage: 300 MG, Q2W
     Dates: start: 20050101
  2. BYETTA [Concomitant]
  3. ZOLOFT [Concomitant]
  4. SYNTHROID [Concomitant]
  5. AMARYL [Concomitant]
  6. ALLOPURINOL [Concomitant]
  7. ZETIA [Concomitant]
  8. AVAPRO [Concomitant]
  9. SPIRIVA [Concomitant]

REACTIONS (1)
  - NEOPLASM MALIGNANT [None]
